FAERS Safety Report 21578610 (Version 1)
Quarter: 2022Q4

REPORT INFORMATION
  Report Type: Report from Study
  Country: DE (occurrence: DE)
  Receive Date: 20221110
  Receipt Date: 20221110
  Transmission Date: 20230112
  Serious: Yes (Hospitalization)
  Sender: FDA-Public Use
  Company Number: DE-EMA-DD-20221021-186141-140301

PATIENT
  Sex: Female

DRUGS (18)
  1. METHOTREXATE [Suspect]
     Active Substance: METHOTREXATE
     Indication: Rheumatoid arthritis
     Dosage: UNIT DOSE : 15 MG, THERAPY END DATE : ASKED BUT UNKNOWN
     Route: 065
     Dates: start: 20120626
  2. METHOTREXATE [Suspect]
     Active Substance: METHOTREXATE
     Dosage: UNIT DOSE : 15 MG, THERAPY END DATE : ASKED BUT UNKNOWN
     Route: 065
     Dates: start: 20111207
  3. METHOTREXATE [Suspect]
     Active Substance: METHOTREXATE
     Dosage: UNIT DOSE : 15 MG, THERAPY END DATE : ASKED BUT UNKNOWN
     Route: 065
     Dates: start: 20150504
  4. METHOTREXATE [Suspect]
     Active Substance: METHOTREXATE
     Dosage: UNIT DOSE : 15 MG, THERAPY END DATE : ASKED BUT UNKNOWN
     Route: 065
     Dates: start: 20130624
  5. METHOTREXATE [Suspect]
     Active Substance: METHOTREXATE
     Dosage: UNIT DOSE : 15 MG, THERAPY END DATE : ASKED BUT UNKNOWN
     Route: 065
     Dates: start: 20160602
  6. METHOTREXATE [Suspect]
     Active Substance: METHOTREXATE
     Dosage: UNIT DOSE : 15 MG, THERAPY END DATE : ASKED BUT UNKNOWN
     Route: 065
     Dates: start: 20161202
  7. METHOTREXATE [Suspect]
     Active Substance: METHOTREXATE
     Dosage: THERAPY START DATE  AND  THERAPY END DATE : ASKED BUT UNKNOWN
     Route: 065
  8. METHOTREXATE [Suspect]
     Active Substance: METHOTREXATE
     Dosage: UNIT DOSE : 15 MG, THERAPY END DATE : ASKED BUT UNKNOWN
     Route: 065
     Dates: start: 20170602
  9. METHOTREXATE [Suspect]
     Active Substance: METHOTREXATE
     Dosage: UNIT DOSE : 15 MG, THERAPY END DATE : ASKED BUT UNKNOWN
     Route: 065
     Dates: start: 20110601
  10. METHOTREXATE [Suspect]
     Active Substance: METHOTREXATE
     Dosage: UNIT DOSE : 15 MG, THERAPY END DATE : ASKED BUT UNKNOWN
     Route: 065
     Dates: start: 20110928
  11. METHOTREXATE [Suspect]
     Active Substance: METHOTREXATE
     Dosage: UNIT DOSE : 15 MG, THERAPY END DATE : ASKED BUT UNKNOWN
     Route: 065
     Dates: start: 20151202
  12. METHOTREXATE [Suspect]
     Active Substance: METHOTREXATE
     Dosage: UNIT DOSE : 15 MG, THERAPY END DATE : ASKED BUT UNKNOWN .
     Route: 065
     Dates: start: 20121029
  13. LEFLUNOMIDE [Suspect]
     Active Substance: LEFLUNOMIDE
     Indication: Product used for unknown indication
     Dosage: UNIT DOSE : 10 MG, THERAPY END DATE : ASKED BUT UNKNOWN
     Route: 065
     Dates: start: 20110601
  14. LEFLUNOMIDE [Suspect]
     Active Substance: LEFLUNOMIDE
     Dosage: UNIT DOSE : 10 MG, THERAPY END DATE : ASKED BUT UNKNOWN
     Route: 065
     Dates: start: 20110928
  15. LEFLUNOMIDE [Suspect]
     Active Substance: LEFLUNOMIDE
     Dosage: UNIT DOSE : 10 MG, THERAPY END DATE : ASKED BUT UNKNOWN
     Route: 065
     Dates: start: 20121029
  16. LEFLUNOMIDE [Suspect]
     Active Substance: LEFLUNOMIDE
     Dosage: UNIT DOSE : 10 MG, THERAPY END DATE : ASKED BUT UNKNOWN
     Route: 065
     Dates: start: 20120626
  17. LEFLUNOMIDE [Suspect]
     Active Substance: LEFLUNOMIDE
     Dosage: UNIT DOSE : 10 MG, THERAPY END DATE : ASKED BUT UNKNOWN
     Route: 065
     Dates: start: 20111207
  18. CIMZIA [Concomitant]
     Active Substance: CERTOLIZUMAB PEGOL
     Indication: Product used for unknown indication
     Dosage: UNIT DOSE : 200 MG,
     Route: 065
     Dates: start: 201403, end: 201403

REACTIONS (4)
  - Radius fracture [Recovered/Resolved]
  - Diarrhoea [Recovered/Resolved]
  - Nausea [Unknown]
  - Skin ulcer [Recovered/Resolved]

NARRATIVE: CASE EVENT DATE: 20170214
